FAERS Safety Report 5869451-2 (Version None)
Quarter: 2008Q3

REPORT INFORMATION
  Report Type: 
  Country: None (occurrence: None)
  Receive Date: 20080829
  Receipt Date: 20080819
  Transmission Date: 20090109
  Serious: Yes (Other)
  Sender: FDA-Public Use
  Company Number: 02100-USA-07-0002

PATIENT
  Age: 77 Year
  Sex: Female

DRUGS (15)
  1. PLETAL [Suspect]
     Indication: INTERMITTENT CLAUDICATION
     Dosage: UNK,UNK,UNK
  2. ZOFRAN [Suspect]
  3. NORVASC [Concomitant]
  4. LIPITOR [Concomitant]
  5. TOPROL-XL [Concomitant]
  6. AMILORIDE W/HYDROCHLOROTHIAZIDE (HYDROCHLOROTHIAZIDE, AMILORIDE) [Concomitant]
  7. LEVOXYL [Concomitant]
  8. ASPIRIN [Concomitant]
  9. CALCIUM W/ VITAMIN D (CALCIUM, VITAMIN D NOS) [Concomitant]
  10. STOOL SOFTENER (DOCUSATE SODIUM) [Concomitant]
  11. LOVAZA [Concomitant]
  12. DIOVAN HCT [Concomitant]
  13. PLAVIX [Concomitant]
  14. LESCOL ^NOVARTIS^(FLUVASTATIN SODIUM) [Concomitant]
  15. STATINS [Concomitant]

REACTIONS (9)
  - ADVERSE DRUG REACTION [None]
  - DEAFNESS UNILATERAL [None]
  - JOINT SWELLING [None]
  - NAUSEA [None]
  - OEDEMA PERIPHERAL [None]
  - PAIN [None]
  - PAIN IN EXTREMITY [None]
  - SKIN DISCOLOURATION [None]
  - VERTIGO [None]
